FAERS Safety Report 9040809 (Version 1)
Quarter: 2013Q1

REPORT INFORMATION
  Report Type: Report from Study
  Country: US (occurrence: US)
  Receive Date: 20130129
  Receipt Date: 20130129
  Transmission Date: 20140127
  Serious: No
  Sender: FDA-Public Use
  Company Number: US-ABBOTT-12P-163-0896313-00

PATIENT
  Age: 59 Year
  Sex: Female

DRUGS (8)
  1. HUMIRA 40 MG/0.8 ML PEN [Suspect]
     Indication: RHEUMATOID ARTHRITIS
     Dates: start: 20111122
  2. PROLIA [Concomitant]
     Indication: BONE DISORDER
     Dosage: AT PHYSICIAN^S OFFICE, TWICE PER YEAR
  3. PHENOBARB [Concomitant]
     Indication: BRAIN OPERATION
  4. AMLODIPINE [Concomitant]
     Indication: CARDIAC VALVE DISEASE
  5. OXCARBAZEPINE [Concomitant]
     Indication: CONVULSION
  6. VENLAFAXINE [Concomitant]
     Indication: DEPRESSION
  7. AMITRIPTYLINE [Concomitant]
     Indication: INSOMNIA
     Dosage: AT BEDTIME
  8. MOBIC [Concomitant]
     Indication: PAIN
     Dosage: PRN

REACTIONS (7)
  - Injection site pain [Recovered/Resolved]
  - Injection site erythema [Not Recovered/Not Resolved]
  - Injection site erythema [Not Recovered/Not Resolved]
  - Injection site papule [Not Recovered/Not Resolved]
  - Injection site pruritus [Not Recovered/Not Resolved]
  - Deformity [Not Recovered/Not Resolved]
  - Pain in extremity [Not Recovered/Not Resolved]
